FAERS Safety Report 18547009 (Version 1)
Quarter: 2020Q4

REPORT INFORMATION
  Report Type: Spontaneous
  Country: US (occurrence: US)
  Receive Date: 20201125
  Receipt Date: 20201125
  Transmission Date: 20210114
  Serious: Yes (Life-Threatening, Hospitalization)
  Sender: FDA-Public Use
  Company Number: US-PFIZER INC-2020458758

PATIENT
  Age: 66 Year
  Sex: Male

DRUGS (7)
  1. NORTRIPTYLINE [Concomitant]
     Active Substance: NORTRIPTYLINE
     Dosage: 25 MG, DAILY
  2. IRON SULFATE [Concomitant]
     Active Substance: FERROUS SULFATE ANHYDROUS
     Dosage: 325 MG, 2X/DAY
  3. SPIRONOLACTONE. [Suspect]
     Active Substance: SPIRONOLACTONE
     Indication: HYPERTENSION
     Dosage: 100 MG, DAILY
  4. LACTULOSE. [Concomitant]
     Active Substance: LACTULOSE
     Dosage: UNK, AS NEEDED
  5. VANCOMYCIN [Concomitant]
     Active Substance: VANCOMYCIN
     Indication: STAPHYLOCOCCAL INFECTION
     Dosage: UNK
     Route: 042
  6. SULFAMETHOXAZOLE/TRIMETHOPRIM [Suspect]
     Active Substance: SULFAMETHOXAZOLE\TRIMETHOPRIM
     Indication: STAPHYLOCOCCAL INFECTION
     Dosage: 2 DF, 2X/DAY
     Route: 048
  7. FOLIC ACID. [Concomitant]
     Active Substance: FOLIC ACID
     Dosage: 1 MG, DAILY

REACTIONS (3)
  - Hyperkalaemia [Recovered/Resolved]
  - Electrocardiogram T wave peaked [Recovered/Resolved]
  - Electrocardiogram QRS complex prolonged [Recovered/Resolved]
